FAERS Safety Report 7315995-6 (Version None)
Quarter: 2011Q1

REPORT INFORMATION
  Report Type: 
  Country: None (occurrence: None)
  Receive Date: 20110225
  Receipt Date: 20110215
  Transmission Date: 20110831
  Serious: Yes (Hospitalization)
  Sender: FDA-Public Use
  Company Number: PHHY2011US13329

PATIENT
  Sex: Female
  Weight: 37 kg

DRUGS (1)
  1. EXJADE [Suspect]
     Indication: ACUTE MYELOID LEUKAEMIA
     Dosage: 750MG
     Route: 048
     Dates: start: 20090508

REACTIONS (2)
  - PNEUMONIA [None]
  - NAUSEA [None]
